FAERS Safety Report 14267696 (Version 1)
Quarter: 2017Q4

REPORT INFORMATION
  Report Type: Spontaneous
  Country: US (occurrence: US)
  Receive Date: 20171211
  Receipt Date: 20171211
  Transmission Date: 20180321
  Serious: Yes (Disabling, Other)
  Sender: FDA-Public Use
  Company Number: None

PATIENT
  Age: 68 Year
  Sex: Male
  Weight: 133.2 kg

DRUGS (8)
  1. METAPROLOL SUCCINATE [Concomitant]
     Active Substance: METOPROLOL SUCCINATE
  2. VITAMINS [Concomitant]
     Active Substance: VITAMINS
  3. VITAMIN D3 [Concomitant]
     Active Substance: CHOLECALCIFEROL
  4. LIPITOR [Concomitant]
     Active Substance: ATORVASTATIN CALCIUM
  5. PENTAPYROZOLE [Concomitant]
  6. ALLOPURINOL. [Suspect]
     Active Substance: ALLOPURINOL
     Indication: GOUT
     Dates: start: 19780101, end: 20150101
  7. ACID SUPPORT [Concomitant]
  8. BABY ASPIRIN [Concomitant]
     Active Substance: ASPIRIN

REACTIONS (8)
  - Arthralgia [None]
  - Therapy change [None]
  - Myalgia [None]
  - Eye pain [None]
  - Pain [None]
  - Type 2 diabetes mellitus [None]
  - Dyskinesia [None]
  - Disease recurrence [None]
